FAERS Safety Report 6231425-X (Version None)
Quarter: 2009Q2

REPORT INFORMATION
  Report Type: 
  Country: None (occurrence: None)
  Receive Date: 20090612
  Receipt Date: 20090612
  Transmission Date: 20091009
  Serious: Yes (Hospitalization)
  Sender: FDA-Public Use
  Company Number: None

PATIENT
  Sex: Female
  Weight: 73.5 kg

DRUGS (1)
  1. RAPAMYCIN [Suspect]
     Indication: ENDOMETRIAL CANCER METASTATIC
     Dosage: 60 MG WEEKLY PO
     Route: 048
     Dates: start: 20090427, end: 20090519

REACTIONS (2)
  - DEEP VEIN THROMBOSIS [None]
  - PERICARDIAL EFFUSION [None]
